FAERS Safety Report 17913529 (Version 1)
Quarter: 2020Q2

REPORT INFORMATION
  Report Type: Spontaneous
  Country: US (occurrence: US)
  Receive Date: 20200618
  Receipt Date: 20200618
  Transmission Date: 20200714
  Serious: Yes (Life-Threatening, Hospitalization, Other)
  Sender: FDA-Public Use
  Company Number: US-BAYER-2020-112810

PATIENT
  Age: 16 Year
  Sex: Female

DRUGS (1)
  1. ALKA-SELTZER PLUS SORE THROAT RELIEF HONEY LEMON FLAVOR [Suspect]
     Active Substance: ACETAMINOPHEN
     Dosage: 906 MG/KG

REACTIONS (9)
  - Transaminases increased [Recovering/Resolving]
  - Analgesic drug level increased [Recovering/Resolving]
  - Vomiting [Recovering/Resolving]
  - Abdominal pain upper [Recovering/Resolving]
  - Intentional overdose [Recovering/Resolving]
  - Haematemesis [Recovering/Resolving]
  - Pancreatitis acute [Recovering/Resolving]
  - Toxicity to various agents [Recovering/Resolving]
  - Nausea [Recovering/Resolving]
